FAERS Safety Report 23918550 (Version 1)
Quarter: 2024Q2

REPORT INFORMATION
  Report Type: Spontaneous
  Country: JP (occurrence: JP)
  Receive Date: 20240530
  Receipt Date: 20240530
  Transmission Date: 20240716
  Serious: Yes (Death, Hospitalization)
  Sender: FDA-Public Use
  Company Number: JP-CHUGAI-2024017829

PATIENT
  Age: 5 Decade
  Sex: Female

DRUGS (1)
  1. PHESGO [Suspect]
     Active Substance: HYALURONIDASE-ZZXF\PERTUZUMAB\TRASTUZUMAB
     Indication: Colorectal cancer
     Dosage: UNK
     Route: 058

REACTIONS (2)
  - Bone pain [Recovered/Resolved]
  - Disease progression [Fatal]
